FAERS Safety Report 24595701 (Version 1)
Quarter: 2024Q4

REPORT INFORMATION
  Report Type: Report from Study
  Country: ZA (occurrence: ZA)
  Receive Date: 20241109
  Receipt Date: 20241109
  Transmission Date: 20250114
  Serious: Yes (Hospitalization)
  Sender: ALEXION PHARMACEUTICALS
  Company Number: ZA-AstraZeneca-CH-00741607A

PATIENT
  Age: 70 Year

DRUGS (10)
  1. DAPAGLIFLOZIN [Suspect]
     Active Substance: DAPAGLIFLOZIN
  2. DAPAGLIFLOZIN [Suspect]
     Active Substance: DAPAGLIFLOZIN
  3. DAPAGLIFLOZIN [Suspect]
     Active Substance: DAPAGLIFLOZIN
  4. DAPAGLIFLOZIN [Suspect]
     Active Substance: DAPAGLIFLOZIN
  5. ADCO-ZOLPIDEM HEMITARTRATE 10 MG [Concomitant]
  6. EVOREL 100 100 MCG [Concomitant]
  7. CIPLA LOPERAMIDE 2 MG [Concomitant]
  8. FUCIDIN 20 MG [Concomitant]
  9. IXAROLA 15 MG [Concomitant]
  10. SUPIROBAN 20 MG [Concomitant]

REACTIONS (1)
  - Hernia [Unknown]
